FAERS Safety Report 4367638-1 (Version None)
Quarter: 2004Q2

REPORT INFORMATION
  Report Type: 
  Country: None (occurrence: None)
  Receive Date: 20040601
  Receipt Date: 20040521
  Transmission Date: 20050107
  Serious: Yes (Life-Threatening)
  Sender: FDA-Public Use
  Company Number: IT-MERCK-0405ITA00038

PATIENT
  Age: 81 Year
  Sex: Female

DRUGS (7)
  1. MODURETIC 5-50 [Suspect]
     Route: 048
     Dates: start: 19980502, end: 20040502
  2. BECLOMETHASONE DIPROPIONATE [Concomitant]
     Route: 065
  3. FENOTEROL HYDROBROMIDE [Concomitant]
     Route: 065
  4. METHYLPREDNISOLONE [Concomitant]
     Route: 065
  5. METOCLOPRAMIDE HYDROCHLORIDE [Concomitant]
     Route: 065
  6. NIFEDIPINE [Concomitant]
     Route: 065
  7. OMEPRAZOLE [Concomitant]
     Route: 065

REACTIONS (4)
  - CEREBRAL ISCHAEMIA [None]
  - COMA [None]
  - CONFUSIONAL STATE [None]
  - HYPONATRAEMIA [None]
